FAERS Safety Report 5692217-3 (Version None)
Quarter: 2008Q2

REPORT INFORMATION
  Report Type: 
  Country: None (occurrence: None)
  Receive Date: 20080402
  Receipt Date: 20080324
  Transmission Date: 20081010
  Serious: Yes (Death)
  Sender: FDA-Public Use
  Company Number: US-PURDUE-USA_2008_0031850

PATIENT
  Sex: Female

DRUGS (26)
  1. OXYCONTIN [Suspect]
     Indication: DRUG USE FOR UNKNOWN INDICATION
     Dosage: UNK, SEE TEXT
     Route: 048
  2. CYCLOSPORINE [Concomitant]
     Dosage: UNK, UNK
  3. DIFLUCAN [Concomitant]
     Dosage: 200 MG, DAILY
  4. DUONEB [Concomitant]
     Dosage: UNK, PRN
     Route: 055
  5. EFFEXOR [Concomitant]
     Dosage: 75 MG, DAILY
  6. FERROUS SULFATE TAB [Concomitant]
     Dosage: 325 MG, BID
  7. ASCORBIC ACID [Concomitant]
     Dosage: 250 MG, TID
  8. FLORINEF [Concomitant]
     Dosage: .1 MG, QOD
  9. LOPRESSOR [Concomitant]
     Dosage: 50 MG, BID
  10. MIRALAX [Concomitant]
     Dosage: 17 GRAM, DAILY
  11. NORVASC [Concomitant]
     Dosage: 2.5 MG, DAILY
  12. OXYCODONE HCL [Suspect]
     Indication: DRUG USE FOR UNKNOWN INDICATION
     Dosage: 5 UNK, UNK
  13. SYNTHROID [Concomitant]
     Dosage: 112 MCG, DAILY
  14. XANAX [Concomitant]
     Dosage: .25 MG, PRN
  15. ZOFRAN [Concomitant]
     Indication: NAUSEA
     Dosage: 4 MG, PRN
  16. VITAMIN CAP [Concomitant]
     Dosage: 1 TABLET, DAILY
  17. MAGNESIUM GLUCONATE [Concomitant]
     Dosage: 500 MG, BID
  18. FOSAMAX [Concomitant]
     Dosage: 70 MG, WEEKLY
  19. CALCIUM CARBONATE [Concomitant]
     Dosage: 1500 MG, DAILY
  20. COLACE [Concomitant]
     Dosage: 100 MG, BID
  21. KEPPRA [Concomitant]
     Dosage: 500 MG, BID
  22. PREDNISONE TAB [Concomitant]
     Dosage: 7.5 MG, UNK
  23. REGLAN [Concomitant]
     Dosage: 5 MG, BID
  24. VITAMIN D [Concomitant]
     Dosage: 1200 MG, DAILY
  25. NEXIUM [Concomitant]
     Dosage: 40 MG, BID
  26. ARTIFICIAL TEARS [Concomitant]
     Dosage: UNK, PRN

REACTIONS (3)
  - FAILURE TO THRIVE [None]
  - MALNUTRITION [None]
  - RESPIRATORY FAILURE [None]
